FAERS Safety Report 8386397-9 (Version None)
Quarter: 2012Q2

REPORT INFORMATION
  Report Type: 
  Country: None (occurrence: None)
  Receive Date: 20120523
  Receipt Date: 20120523
  Transmission Date: 20120825
  Serious: Yes (Other)
  Sender: FDA-Public Use
  Company Number: None

PATIENT
  Age: 45 Year
  Sex: Male
  Weight: 86.1834 kg

DRUGS (1)
  1. RISPERIDONE [Suspect]
     Indication: BIPOLAR DISORDER
     Dosage: 4MG ONCE DAILY PO
     Route: 048

REACTIONS (2)
  - ORGASM ABNORMAL [None]
  - ERECTILE DYSFUNCTION [None]
